FAERS Safety Report 9039014 (Version 1)
Quarter: 2013Q1

REPORT INFORMATION
  Report Type: Spontaneous
  Country: US (occurrence: None)
  Receive Date: 20130123
  Receipt Date: 20130123
  Transmission Date: 20140127
  Serious: Yes (Other)
  Sender: FDA-Public Use
  Company Number: None

PATIENT
  Age: 30 Year
  Sex: Female
  Weight: 74.84 kg

DRUGS (1)
  1. PHENTERMINE [Suspect]
     Indication: WEIGHT DECREASED
     Dosage: 1 PILL DAILY
     Route: 048
     Dates: start: 20101001, end: 20110331

REACTIONS (6)
  - Mood altered [None]
  - Anger [None]
  - Thinking abnormal [None]
  - Abnormal behaviour [None]
  - Mood swings [None]
  - Aggression [None]
